FAERS Safety Report 12561377 (Version 1)
Quarter: 2016Q3

REPORT INFORMATION
  Report Type: Spontaneous
  Country: US (occurrence: US)
  Receive Date: 20160715
  Receipt Date: 20160715
  Transmission Date: 20161109
  Serious: Yes (Other)
  Sender: FDA-Public Use
  Company Number: US-PFIZER INC-2016342607

PATIENT
  Age: 50 Year
  Sex: Female
  Weight: 63.5 kg

DRUGS (4)
  1. CELECOXIB. [Suspect]
     Active Substance: CELECOXIB
     Dosage: UNK
  2. OMEPRAZOLE. [Concomitant]
     Active Substance: OMEPRAZOLE
     Indication: HIATUS HERNIA
     Dosage: 40 MG, UNK
  3. CELEBREX [Suspect]
     Active Substance: CELECOXIB
     Indication: FIBROMYALGIA
     Dosage: 100 MG, 2X/DAY (100MG, CAPSULE, ONE IN THE MORNING AND ONE AT NIGHT)
     Route: 048
  4. TRAMADOL. [Concomitant]
     Active Substance: TRAMADOL
     Indication: PAIN
     Dosage: 100 MG, DAILY (50MG, TWO A DAY)

REACTIONS (3)
  - Chronic kidney disease [Not Recovered/Not Resolved]
  - Nephrolithiasis [Not Recovered/Not Resolved]
  - Product use issue [Unknown]
